FAERS Safety Report 5109389-1 (Version None)
Quarter: 2006Q3

REPORT INFORMATION
  Report Type: 
  Country: None (occurrence: None)
  Receive Date: 20060920
  Receipt Date: 20060727
  Transmission Date: 20061208
  Serious: Yes (Other)
  Sender: FDA-Public Use
  Company Number: JP-PURDUE-USA_2006_0024716

PATIENT
  Age: 4 Year
  Sex: Male

DRUGS (6)
  1. CEFDITOREN PIVOXIL (SIMILAR TO NDA 21-222) [Suspect]
     Indication: BRONCHITIS ACUTE
     Dosage: 159 MG, DAILY
     Route: 048
     Dates: start: 20060605, end: 20060608
  2. CEFDITOREN PIVOXIL (SIMILAR TO NDA 21-222) [Suspect]
     Dosage: 159 MG, DAILY
     Route: 048
     Dates: start: 20060620, end: 20060621
  3. POLARAMINE [Concomitant]
     Indication: BRONCHITIS ACUTE
     Dosage: 4 MG, DAILY
     Route: 048
     Dates: start: 20060605, end: 20060610
  4. POLARAMINE [Concomitant]
     Dosage: 4 MG, DAILY
     Route: 048
     Dates: start: 20060620, end: 20060629
  5. ATOCK [Concomitant]
     Indication: COUGH
     Dosage: 80 MCG, DAILY
     Route: 048
     Dates: start: 20060605, end: 20060610
  6. ATOCK [Concomitant]
     Dosage: 80 MCG, DAILY
     Route: 048
     Dates: start: 20060620, end: 20060629

REACTIONS (4)
  - DECREASED APPETITE [None]
  - GAIT DISTURBANCE [None]
  - HYPOGLYCAEMIA [None]
  - WHITE BLOOD CELL COUNT INCREASED [None]
